FAERS Safety Report 9145317 (Version 1)
Quarter: 2013Q1

REPORT INFORMATION
  Report Type: Spontaneous
  Country: US (occurrence: None)
  Receive Date: 20130227
  Receipt Date: 20130227
  Transmission Date: 20140127
  Serious: Yes (Death)
  Sender: FDA-Public Use
  Company Number: AUR-APL-2013-00477

PATIENT
  Age: 56 Year
  Sex: Male

DRUGS (7)
  1. AMLODIPINE (AMLODIPINE) [Suspect]
  2. METOPROLOL (METOPROLOL) [Suspect]
  3. ZOLPIDEM (ZOLPIDEM) [Suspect]
  4. IMIPRAMINE [Suspect]
  5. PERPHENAZINE [Suspect]
  6. HYDROXYZINE (HYDROXYZINE) [Suspect]
  7. CLONAZEPAM (CLONAZEPAM) (CLONAZEPAM) [Suspect]

REACTIONS (2)
  - Completed suicide [None]
  - Toxicity to various agents [None]
